FAERS Safety Report 9057126 (Version 1)
Quarter: 2013Q1

REPORT INFORMATION
  Report Type: Spontaneous
  Country: US (occurrence: US)
  Receive Date: 20130131
  Receipt Date: 20130131
  Transmission Date: 20140127
  Serious: Yes (Other)
  Sender: FDA-Public Use
  Company Number: US-PFIZER INC-2013034814

PATIENT
  Age: 68 Year
  Sex: Female
  Weight: 104.31 kg

DRUGS (2)
  1. PREMARIN [Suspect]
     Dosage: 1 G, 3X/WEEK
     Route: 067
     Dates: start: 201212, end: 20130121
  2. JANUVIA [Concomitant]
     Indication: GLUCOSE TOLERANCE IMPAIRED
     Dosage: UNK

REACTIONS (2)
  - Constipation [Unknown]
  - Dysuria [Unknown]
